FAERS Safety Report 8107304-X (Version None)
Quarter: 2012Q1

REPORT INFORMATION
  Report Type: 
  Country: None (occurrence: None)
  Receive Date: 20120202
  Receipt Date: 20120126
  Transmission Date: 20120608
  Serious: Yes (Other)
  Sender: FDA-Public Use
  Company Number: BR-PFIZER INC-2012022024

PATIENT
  Age: 53 Year
  Sex: Female

DRUGS (5)
  1. SYNTHROID [Concomitant]
     Indication: THYROID DISORDER
     Dosage: 75 MG, 1X/DAY
     Dates: start: 20070101
  2. ZOLOFT [Concomitant]
     Indication: DEPRESSION
     Dosage: 200 MG, DAILY
     Dates: start: 20111001
  3. EFFEXOR XR [Suspect]
     Indication: DEPRESSION
     Dosage: 150 MG, 2X/DAY
     Route: 048
     Dates: start: 20050531, end: 20111223
  4. PANTOPRAZOLE [Concomitant]
     Indication: GASTRIC DISORDER
     Dosage: 20 MG, 1X/DAY
     Dates: start: 20090101
  5. CLONAZEPAM [Concomitant]
     Indication: SLEEP DISORDER
     Dosage: 4 MG, DAILY
     Dates: start: 20050101

REACTIONS (2)
  - DRUG INEFFECTIVE [None]
  - THYROID DISORDER [None]
